FAERS Safety Report 10450858 (Version 16)
Quarter: 2015Q1

REPORT INFORMATION
  Report Type: Spontaneous
  Country: IL (occurrence: IL)
  Receive Date: 20140912
  Receipt Date: 20150223
  Transmission Date: 20150720
  Serious: Yes (Death, Hospitalization)
  Sender: FDA-Public Use
  Company Number: IL-PFIZER INC-2014236519

PATIENT
  Age: 64 Year
  Sex: Male

DRUGS (4)
  1. SUTENT [Suspect]
     Active Substance: SUNITINIB MALATE
     Indication: RENAL CELL CARCINOMA
     Dosage: 50 MG, CYCLIC (1X/DAY, CYCLIC), CYCLE NUMBER 3, CUMULATIVE DOSE HARD TO ESTIMATE
     Route: 048
     Dates: start: 20140808, end: 20150102
  2. PREDNISONE. [Concomitant]
     Active Substance: PREDNISONE
     Dosage: UNK
     Route: 048
  3. LAXADINE [Concomitant]
     Dosage: UNK
     Route: 048
  4. AVILAC [Concomitant]
     Dosage: UNK
     Route: 048

REACTIONS (34)
  - Urinary tract infection [Unknown]
  - White blood cell count decreased [Not Recovered/Not Resolved]
  - Haemoglobin decreased [Not Recovered/Not Resolved]
  - Blood albumin decreased [Not Recovered/Not Resolved]
  - Neutropenia [Recovering/Resolving]
  - Subcutaneous haematoma [Recovering/Resolving]
  - Dysphagia [Recovering/Resolving]
  - Headache [Recovering/Resolving]
  - Vomiting [Recovering/Resolving]
  - Cachexia [Unknown]
  - Rash [Unknown]
  - Oropharyngeal pain [Not Recovered/Not Resolved]
  - Blood urine present [Recovered/Resolved]
  - Pyrexia [Recovered/Resolved]
  - Dyspnoea [Recovered/Resolved]
  - Stomatitis [Recovering/Resolving]
  - Oral pain [Not Recovered/Not Resolved]
  - Hyperhidrosis [Recovered/Resolved]
  - Pneumonia [Unknown]
  - Asthenia [Not Recovered/Not Resolved]
  - Oral pain [Recovering/Resolving]
  - Glossodynia [Unknown]
  - Chest pain [Unknown]
  - Constipation [Recovering/Resolving]
  - Pain [Recovering/Resolving]
  - Erythema [Not Recovered/Not Resolved]
  - Death [Fatal]
  - Nausea [Recovering/Resolving]
  - Fall [Recovering/Resolving]
  - Haemorrhage [Recovered/Resolved]
  - Musculoskeletal chest pain [Not Recovered/Not Resolved]
  - Decubitus ulcer [Recovering/Resolving]
  - Dry skin [Not Recovered/Not Resolved]
  - Blood pressure increased [Not Recovered/Not Resolved]

NARRATIVE: CASE EVENT DATE: 2014
